FAERS Safety Report 7231142-3 (Version None)
Quarter: 2011Q1

REPORT INFORMATION
  Report Type: 
  Country: None (occurrence: None)
  Receive Date: 20110118
  Receipt Date: 20110107
  Transmission Date: 20110831
  Serious: Yes (Hospitalization, Other)
  Sender: FDA-Public Use
  Company Number: GB-WATSON-2010-14009

PATIENT
  Age: 66 Year
  Sex: Female

DRUGS (7)
  1. ISMO [Concomitant]
     Dosage: 30 MG, BID
     Route: 048
  2. STEMETIL                           /00013301/ [Concomitant]
     Dosage: UNK
  3. CLOZARIL [Suspect]
     Indication: SCHIZOPHRENIA
     Dosage: 400 MG, UNKNOWN
     Dates: start: 20091002, end: 20101129
  4. CLOZARIL [Suspect]
     Dosage: UNK
     Route: 048
     Dates: start: 20101203
  5. SIMVASTATIN [Concomitant]
     Dosage: 60 MG, UNK
     Route: 048
  6. CITALOPRAM HYDROBROMIDE [Suspect]
     Indication: DEPRESSION
     Dosage: 20 MG, DAILY
     Route: 048
     Dates: end: 20100722
  7. ZOPICLONE [Concomitant]
     Dosage: UNK

REACTIONS (9)
  - GASTROINTESTINAL ULCER [None]
  - FALL [None]
  - HAEMATEMESIS [None]
  - LOSS OF CONSCIOUSNESS [None]
  - GASTROINTESTINAL HAEMORRHAGE [None]
  - URINARY TRACT INFECTION [None]
  - DIZZINESS [None]
  - OESOPHAGITIS [None]
  - OESOPHAGEAL ULCER [None]
